FAERS Safety Report 5862772-9 (Version None)
Quarter: 2008Q3

REPORT INFORMATION
  Report Type: 
  Country: None (occurrence: None)
  Receive Date: 20080828
  Receipt Date: 20080819
  Transmission Date: 20090109
  Serious: Yes (Disabling, Other)
  Sender: FDA-Public Use
  Company Number: US-WYE-H05645008

PATIENT
  Sex: Male

DRUGS (5)
  1. EFFEXOR XR [Suspect]
     Indication: DEPRESSION
     Dates: start: 20000101
  2. EFFEXOR XR [Suspect]
     Dosage: REPLACED ONE 75 MG CAPSULE WITH A 37.5 MG
  3. EFFEXOR XR [Suspect]
     Dosage: REPLACED 2 OF THE 75 MG CAPSULES WITH 37.5 MG CAPSULES
  4. EFFEXOR XR [Suspect]
     Dosage: SOON I WAS DOWN TO ONLY 37.5 MG CAPSULES
  5. EFFEXOR XR [Suspect]
     Dosage: KEPT REDUCING THE DOSAGE
     Dates: end: 20080501

REACTIONS (20)
  - ANXIETY [None]
  - BALANCE DISORDER [None]
  - BLOOD PRESSURE INCREASED [None]
  - CONFUSIONAL STATE [None]
  - CRYING [None]
  - DEREALISATION [None]
  - DIARRHOEA [None]
  - DISSOCIATION [None]
  - DISTURBANCE IN ATTENTION [None]
  - DIZZINESS [None]
  - DRUG WITHDRAWAL SYNDROME [None]
  - FEELING ABNORMAL [None]
  - ILL-DEFINED DISORDER [None]
  - INFLUENZA LIKE ILLNESS [None]
  - INSOMNIA [None]
  - MENTAL DISORDER [None]
  - NAUSEA [None]
  - PAIN IN EXTREMITY [None]
  - SUICIDAL IDEATION [None]
  - VISION BLURRED [None]
